FAERS Safety Report 11576770 (Version 2)
Quarter: 2015Q4

REPORT INFORMATION
  Report Type: Spontaneous
  Country: JP (occurrence: JP)
  Receive Date: 20150930
  Receipt Date: 20151029
  Transmission Date: 20160304
  Serious: Yes (Life-Threatening, Other)
  Sender: FDA-Public Use
  Company Number: JP-PFIZER INC-2015324617

PATIENT
  Age: 81 Year
  Sex: Female

DRUGS (14)
  1. THYRADIN [Suspect]
     Active Substance: LEVOTHYROXINE
     Dosage: UNK
  2. LYRICA [Suspect]
     Active Substance: PREGABALIN
     Indication: POST HERPETIC NEURALGIA
     Dosage: 5 MG, DAILY
     Route: 048
     Dates: start: 20150214, end: 20150225
  3. REFLEX [Suspect]
     Active Substance: MIRTAZAPINE
     Indication: DEPRESSION
     Dosage: 15 MG, DAILY
     Route: 048
     Dates: start: 20150305
  4. KEISHIKAJUTSUBUTO [Suspect]
     Active Substance: HERBALS
     Dosage: 7.5 G, DAILY
  5. LYRICA [Suspect]
     Active Substance: PREGABALIN
     Dosage: 25 MG, DAILY
     Route: 048
     Dates: start: 20150226, end: 20150318
  6. LYRICA [Suspect]
     Active Substance: PREGABALIN
     Dosage: 50 MG, DAILY
     Route: 048
     Dates: start: 20150319, end: 20150326
  7. RHEUMATREX [Suspect]
     Active Substance: METHOTREXATE SODIUM
     Dosage: 4 MG, WEEKLY
  8. TRAMAL [Suspect]
     Active Substance: TRAMADOL
     Indication: POST HERPETIC NEURALGIA
     Dosage: 75 MG, DAILY
     Route: 048
     Dates: start: 20150528, end: 20150601
  9. PREDNISOLONE. [Suspect]
     Active Substance: PREDNISOLONE
     Dosage: 5 MG, DAILY
  10. TRAMAL [Suspect]
     Active Substance: TRAMADOL
     Dosage: 50 MG, DAILY
     Route: 048
     Dates: start: 20150629
  11. ACONITE [Suspect]
     Active Substance: ACONITUM NAPELLUS
     Indication: INTERCOSTAL NEURALGIA
     Dosage: 3 G, DAILY
     Route: 048
     Dates: start: 20150420, end: 20150601
  12. ACONITE [Suspect]
     Active Substance: ACONITUM NAPELLUS
     Dosage: 1.5 G, DAILY
     Route: 048
     Dates: start: 20150602
  13. ONETRAM [Suspect]
     Active Substance: TRAMADOL HYDROCHLORIDE
     Indication: POST HERPETIC NEURALGIA
     Dosage: 100 MG, DAILY
     Route: 048
     Dates: start: 20150620, end: 20150628
  14. LYRICA [Suspect]
     Active Substance: PREGABALIN
     Dosage: 75 MG, DAILY
     Route: 048
     Dates: start: 20150327

REACTIONS (12)
  - Creatinine renal clearance decreased [Unknown]
  - Language disorder [Recovered/Resolved]
  - Decreased appetite [Unknown]
  - Vomiting [Unknown]
  - Asthenia [Unknown]
  - Blood creatine phosphokinase increased [Unknown]
  - Altered state of consciousness [Recovered/Resolved]
  - C-reactive protein increased [Unknown]
  - Cholecystitis acute [Unknown]
  - White blood cell count increased [Unknown]
  - Atrial fibrillation [Unknown]
  - Dizziness [Unknown]

NARRATIVE: CASE EVENT DATE: 20150916
